FAERS Safety Report 7498628-8 (Version None)
Quarter: 2011Q2

REPORT INFORMATION
  Report Type: 
  Country: None (occurrence: None)
  Receive Date: 20110524
  Receipt Date: 20110503
  Transmission Date: 20111010
  Serious: Yes (Other)
  Sender: FDA-Public Use
  Company Number: US-BAYER-201031102NA

PATIENT
  Age: 26 Year
  Sex: Female

DRUGS (4)
  1. YAZ [Suspect]
     Indication: PRODUCT USED FOR UNKNOWN INDICATION
     Dosage: UNK UNK, UNK
     Route: 048
     Dates: start: 20090501, end: 20090901
  2. HYOSCYAMINE [Concomitant]
     Dosage: 0.125 MG/1 TAB 3 TIMES DAILY
     Route: 060
     Dates: start: 20090401
  3. TOPROL-XL [Concomitant]
     Dosage: 25 MG
     Route: 048
  4. SPIRUTEC [Concomitant]

REACTIONS (7)
  - PRESYNCOPE [None]
  - HEADACHE [None]
  - TACHYCARDIA [None]
  - BACK PAIN [None]
  - VERTIGO [None]
  - CHEST PAIN [None]
  - ASTHENIA [None]
